FAERS Safety Report 7117311-1 (Version None)
Quarter: 2010Q4

REPORT INFORMATION
  Report Type: 
  Country: None (occurrence: None)
  Receive Date: 20101122
  Receipt Date: 20101110
  Transmission Date: 20110411
  Serious: Yes (Other)
  Sender: FDA-Public Use
  Company Number: US-ELI_LILLY_AND_COMPANY-US200912001524

PATIENT
  Sex: Male

DRUGS (9)
  1. HUMALOG [Suspect]
     Indication: DIABETES MELLITUS
     Dosage: UNK, OTHER
  2. HUMALOG [Suspect]
     Dosage: UNK, OTHER
  3. HUMALOG [Suspect]
     Dosage: UNK, OTHER
  4. HUMALOG [Suspect]
     Dosage: UNK, OTHER
  5. LANTUS [Concomitant]
  6. LEVEMIR [Concomitant]
  7. TOPROL-XL [Concomitant]
  8. ASPIRIN [Concomitant]
     Dosage: 3 D/F, DAILY (1/D)
  9. HYDROCHLOROTHIAZIDE [Concomitant]
     Dosage: 12.5 MG, UNK

REACTIONS (9)
  - BALANCE DISORDER [None]
  - BLOOD GLUCOSE INCREASED [None]
  - CEREBROVASCULAR ACCIDENT [None]
  - DYSPNOEA [None]
  - GAIT DISTURBANCE [None]
  - HYPERSENSITIVITY [None]
  - SENSATION OF BLOOD FLOW [None]
  - THROMBOSIS [None]
  - WRONG TECHNIQUE IN DRUG USAGE PROCESS [None]
